FAERS Safety Report 24846036 (Version 2)
Quarter: 2025Q1

REPORT INFORMATION
  Report Type: Spontaneous
  Country: US (occurrence: US)
  Receive Date: 20250115
  Receipt Date: 20250305
  Transmission Date: 20250408
  Serious: No
  Sender: TAKEDA
  Company Number: US-TAKEDA-2024TUS084555

PATIENT
  Sex: Male

DRUGS (3)
  1. TAKHZYRO [Suspect]
     Active Substance: LANADELUMAB-FLYO
     Indication: Immune system disorder
     Dosage: 300 MILLIGRAM, Q2WEEKS
  2. FIRAZYR [Suspect]
     Active Substance: ICATIBANT ACETATE
     Indication: Immune system disorder
  3. FIRAZYR [Suspect]
     Active Substance: ICATIBANT ACETATE

REACTIONS (3)
  - Depression [Unknown]
  - Fall [Unknown]
  - Injection site pain [Unknown]
